FAERS Safety Report 7956740-0 (Version None)
Quarter: 2011Q4

REPORT INFORMATION
  Report Type: 
  Country: None (occurrence: None)
  Receive Date: 20111205
  Receipt Date: 20111125
  Transmission Date: 20120403
  Serious: Yes (Other)
  Sender: FDA-Public Use
  Company Number: US-BAYER-2011-055147

PATIENT
  Age: 30 Year
  Sex: Female
  Weight: 68 kg

DRUGS (8)
  1. DROSPIRENONE AND ETHINYL ESTRADIOL [Suspect]
     Indication: ORAL CONTRACEPTION
     Dosage: UNK
     Dates: start: 20080301, end: 20090801
  2. PAXIL [Concomitant]
     Indication: ANXIETY
  3. EXCEDRIN (MIGRAINE) [Concomitant]
     Dosage: UNK UNK, PRN
     Route: 048
  4. ACIPHEX [Concomitant]
  5. BUPROPION HYDROCHLORIDE [Concomitant]
     Dosage: 150 MG, QD
     Route: 048
  6. PAXIL [Concomitant]
     Indication: DEPRESSION
     Dosage: 20 MG, QD
     Route: 048
     Dates: start: 20040101
  7. YASMIN [Suspect]
     Indication: ORAL CONTRACEPTION
     Dosage: UNK
     Dates: start: 20080301, end: 20090801
  8. NORETHINDRONE [Concomitant]
     Dosage: 5 MG, QD
     Route: 048

REACTIONS (7)
  - GALLBLADDER DISORDER [None]
  - INJURY [None]
  - PAIN [None]
  - FEAR [None]
  - PULMONARY EMBOLISM [None]
  - CHOLECYSTITIS CHRONIC [None]
  - DEEP VEIN THROMBOSIS [None]
